FAERS Safety Report 9738694 (Version 1)
Quarter: 2013Q4

REPORT INFORMATION
  Report Type: Spontaneous
  Country: CN (occurrence: CN)
  Receive Date: 20131209
  Receipt Date: 20131209
  Transmission Date: 20140711
  Serious: Yes (Life-Threatening, Hospitalization, Other)
  Sender: FDA-Public Use
  Company Number: CN-ROCHE-1312328

PATIENT
  Age: 72 Year
  Sex: Male
  Weight: 53 kg

DRUGS (1)
  1. HERCEPTIN [Suspect]
     Indication: HER-2 POSITIVE GASTRIC CANCER
     Route: 042
     Dates: start: 20131119

REACTIONS (3)
  - Hiccups [Recovering/Resolving]
  - Coma [Recovering/Resolving]
  - Pyrexia [Recovered/Resolved]
